FAERS Safety Report 16828940 (Version 1)
Quarter: 2019Q3

REPORT INFORMATION
  Report Type: Spontaneous
  Country: JP (occurrence: JP)
  Receive Date: 20190919
  Receipt Date: 20190919
  Transmission Date: 20191005
  Serious: Yes (Disabling, Other)
  Sender: FDA-Public Use
  Company Number: JP-BAYER-2019-127296

PATIENT
  Age: 81 Year
  Sex: Male
  Weight: 55.7 kg

DRUGS (13)
  1. MIYA-BM [Concomitant]
     Active Substance: CLOSTRIDIUM BUTYRICUM SPORES STRAIN M-55
     Dosage: DAILY DOSE 3 G
     Route: 048
     Dates: start: 20170907, end: 20180117
  2. NEXAVAR [Suspect]
     Active Substance: SORAFENIB
     Indication: HEPATOCELLULAR CARCINOMA
     Dosage: DAILY DOSE 600 MG
     Route: 048
     Dates: start: 20170324, end: 20170406
  3. NEXAVAR [Suspect]
     Active Substance: SORAFENIB
     Indication: HEPATOCELLULAR CARCINOMA
     Dosage: DAILY DOSE 200 MG
     Route: 048
     Dates: start: 20181004, end: 20190314
  4. NEXAVAR [Suspect]
     Active Substance: SORAFENIB
     Indication: HEPATOCELLULAR CARCINOMA
     Dosage: 200 MG, QOD
     Route: 048
     Dates: start: 20190607, end: 20190704
  5. CALONAL [Concomitant]
     Active Substance: ACETAMINOPHEN
     Dosage: UNK
     Route: 048
     Dates: start: 20170223
  6. PYDOXAL [Concomitant]
     Active Substance: PYRIDOXAL
     Dosage: DAILY DOSE 60 MG
     Route: 048
     Dates: start: 20170209
  7. AMBROXOL [Concomitant]
     Active Substance: AMBROXOL
     Dosage: DAILY DOSE 45 MG
     Route: 048
     Dates: start: 20190221
  8. NEXAVAR [Suspect]
     Active Substance: SORAFENIB
     Indication: HEPATOCELLULAR CARCINOMA
     Dosage: DAILY DOSE 400 MG
     Route: 048
     Dates: start: 20170209, end: 20170323
  9. NEXAVAR [Suspect]
     Active Substance: SORAFENIB
     Indication: HEPATOCELLULAR CARCINOMA
     Dosage: DAILY DOSE 400 MG
     Route: 048
     Dates: start: 20170407, end: 20170816
  10. NEXAVAR [Suspect]
     Active Substance: SORAFENIB
     Indication: HEPATOCELLULAR CARCINOMA
     Dosage: DAILY DOSE 200 MG
     Route: 048
     Dates: start: 20190411, end: 20190606
  11. HIRUDOID [Concomitant]
     Active Substance: GLYCOSAMINOGLYCANS
     Dosage: UNK
     Route: 003
     Dates: start: 20170209
  12. MYSER [DIFLUPREDNATE] [Concomitant]
     Dosage: UNK
     Route: 003
     Dates: start: 20170407, end: 20170511
  13. LICKLE [Concomitant]
     Active Substance: ISOLEUCINE\LEUCINE\VALINE
     Dosage: DAILY DOSE 14.22 G
     Route: 048
     Dates: start: 20180426

REACTIONS (3)
  - Renal impairment [Not Recovered/Not Resolved]
  - Off label use [None]
  - Metastases to bone [None]

NARRATIVE: CASE EVENT DATE: 2018
